FAERS Safety Report 20675289 (Version 1)
Quarter: 2022Q2

REPORT INFORMATION
  Report Type: Spontaneous
  Country: IN (occurrence: IN)
  Receive Date: 20220405
  Receipt Date: 20220405
  Transmission Date: 20220721
  Serious: Yes (Other)
  Sender: FDA-Public Use
  Company Number: IN-Fresenius Kabi-FK202203978

PATIENT
  Age: 64 Year
  Sex: Male

DRUGS (2)
  1. DEXAMETHASONE [Suspect]
     Active Substance: DEXAMETHASONE
     Indication: Chronic obstructive pulmonary disease
     Dosage: UNKNOWN
     Route: 042
  2. THEOPHYLLINE/ETOFYLLINE [Concomitant]
     Indication: Chronic obstructive pulmonary disease
     Dosage: UNKNOWN

REACTIONS (1)
  - Symptom masked [Recovered/Resolved]
